FAERS Safety Report 20795371 (Version 1)
Quarter: 2022Q2

REPORT INFORMATION
  Report Type: Spontaneous
  Country: CN (occurrence: None)
  Receive Date: 20220506
  Receipt Date: 20220506
  Transmission Date: 20220721
  Serious: Yes (Other)
  Sender: FDA-Public Use
  Company Number: 2022A170229

PATIENT
  Age: 75 Year
  Sex: Female

DRUGS (5)
  1. GEFITINIB [Suspect]
     Active Substance: GEFITINIB
     Indication: Lung adenocarcinoma
     Route: 048
     Dates: start: 201812, end: 201912
  2. OSIMERTINIB [Suspect]
     Active Substance: OSIMERTINIB
     Indication: Lung adenocarcinoma
     Route: 048
     Dates: start: 202001
  3. CRIZOTINIB [Suspect]
     Active Substance: CRIZOTINIB
     Indication: Lung adenocarcinoma
     Route: 065
     Dates: start: 202003
  4. CRIZOTINIB [Suspect]
     Active Substance: CRIZOTINIB
     Indication: Lung adenocarcinoma
     Route: 065
  5. ALECTINIB [Concomitant]
     Active Substance: ALECTINIB
     Indication: Lung adenocarcinoma
     Dates: start: 202001

REACTIONS (8)
  - EGFR gene mutation [Unknown]
  - Acquired gene mutation [Unknown]
  - Drug resistance [Unknown]
  - Malignant neoplasm progression [Unknown]
  - Metastases to muscle [Unknown]
  - Metastases to liver [Unknown]
  - TP53 gene mutation [Unknown]
  - Gastrointestinal toxicity [Unknown]

NARRATIVE: CASE EVENT DATE: 20191201
